FAERS Safety Report 6601364-0 (Version None)
Quarter: 2010Q1

REPORT INFORMATION
  Report Type: 
  Country: None (occurrence: None)
  Receive Date: 20100207
  Receipt Date: 20100202
  Transmission Date: 20100710
  Serious: Yes (Death)
  Sender: FDA-Public Use
  Company Number: B0633029A

PATIENT
  Sex: 0

DRUGS (4)
  1. LAMIVUDINE [Suspect]
     Indication: PROPHYLAXIS AGAINST HIV INFECTION
     Dosage: TRANSPLACENTARY
     Route: 064
  2. ANTIRETROVIRAL MEDICATION (FORMULATION UNKNOWN) (ANTIRETROVIRAL MEDICA [Suspect]
     Indication: PROPHYLAXIS AGAINST HIV INFECTION
     Dosage: TRANSPLACENTARY
     Route: 064
  3. NEVIRAPINE [Concomitant]
  4. ZIDOVUDINE [Concomitant]

REACTIONS (2)
  - MATERNAL DRUGS AFFECTING FOETUS [None]
  - NEONATAL INFECTION [None]
